FAERS Safety Report 4466399-5 (Version None)
Quarter: 2004Q3

REPORT INFORMATION
  Report Type: 
  Country: None (occurrence: None)
  Receive Date: 20040930
  Receipt Date: 20040920
  Transmission Date: 20050211
  Serious: Yes (Death)
  Sender: FDA-Public Use
  Company Number: 2004067704

PATIENT
  Age: 7 Month
  Sex: Male

DRUGS (2)
  1. ZITHROMAX [Suspect]
     Indication: EAR INFECTION
     Dosage: INTRAVENOUS
     Route: 042
     Dates: start: 20040101, end: 20040101
  2. ZITHROMAX [Suspect]
     Indication: RESPIRATORY TRACT CONGESTION
     Dosage: INTRAVENOUS
     Route: 042
     Dates: start: 20040101, end: 20040101

REACTIONS (1)
  - DEATH [None]
